FAERS Safety Report 8691752 (Version 2)
Quarter: 2013Q4

REPORT INFORMATION
  Report Type: Spontaneous
  Country: DK (occurrence: DK)
  Receive Date: 20120730
  Receipt Date: 20131105
  Transmission Date: 20140711
  Serious: Yes (Life-Threatening, Hospitalization, Disabling)
  Sender: FDA-Public Use
  Company Number: DK-009507513-1207DNK010946

PATIENT
  Sex: Male
  Weight: 70 kg

DRUGS (6)
  1. JANUVIA [Suspect]
     Indication: DIABETES MELLITUS
     Dosage: STYRKE: 100 MG
     Route: 048
     Dates: start: 20120522, end: 20120619
  2. METFORMIN ACTAVIS [Concomitant]
     Indication: DIABETES MELLITUS
     Dates: end: 20120525
  3. LISINOPRIL [Concomitant]
     Indication: HYPERTENSION
     Dates: end: 20120525
  4. OMEPRAZOLE [Concomitant]
  5. SIMVASTATIN [Concomitant]
     Indication: CARDIAC DISORDER
  6. HJERTEMAGNYL [Concomitant]
     Indication: THROMBOSIS PROPHYLAXIS

REACTIONS (1)
  - Tubulointerstitial nephritis [Recovering/Resolving]
